FAERS Safety Report 10577225 (Version 2)
Quarter: 2014Q4

REPORT INFORMATION
  Report Type: Spontaneous
  Country: GB (occurrence: GB)
  Receive Date: 20141111
  Receipt Date: 20141125
  Transmission Date: 20150529
  Serious: Yes (Death, Other)
  Sender: FDA-Public Use
  Company Number: GB-ACTAVIS-2014-23856

PATIENT
  Age: 60 Year
  Sex: Female
  Weight: 94 kg

DRUGS (11)
  1. VOLTAROL [Concomitant]
     Active Substance: DICLOFENAC SODIUM
     Indication: PRODUCT USED FOR UNKNOWN INDICATION
     Dosage: UNK
     Route: 061
  2. BENDROFLUMETHIAZIDE [Concomitant]
     Active Substance: BENDROFLUMETHIAZIDE
     Indication: HYPERTENSION
     Dosage: 2.5 MG, DAILY
     Route: 065
  3. TRAMADOL (UNKNOWN) [Suspect]
     Active Substance: TRAMADOL
     Dosage: 100MG, BID,AT NIGHT
     Route: 065
     Dates: start: 200304
  4. CETIRIZINE HYDROCHLORIDE. [Concomitant]
     Active Substance: CETIRIZINE HYDROCHLORIDE
     Indication: PRODUCT USED FOR UNKNOWN INDICATION
     Dosage: 10 MG, DAILY
     Route: 065
  5. OLMESARTAN [Concomitant]
     Active Substance: OLMESARTAN
     Indication: HYPERTENSION
     Dosage: 40 MG, DAILY
     Route: 065
  6. SYMBICORT [Concomitant]
     Active Substance: BUDESONIDE\FORMOTEROL FUMARATE DIHYDRATE
     Indication: PRODUCT USED FOR UNKNOWN INDICATION
     Dosage: 1 DF, BID. 200/6
     Route: 065
  7. ESOMEPRAZOLE [Concomitant]
     Active Substance: ESOMEPRAZOLE
     Indication: PRODUCT USED FOR UNKNOWN INDICATION
     Dosage: 40 MG, QHS
     Route: 065
  8. AMITRIPTYLINE HYDROCHLORIDE. [Concomitant]
     Active Substance: AMITRIPTYLINE HYDROCHLORIDE
     Indication: MUSCLE RELAXANT THERAPY
     Dosage: 25MG, QHS. INCREASED TO 75MG, THEN REDUCED BACK TO 25MG.
     Route: 065
     Dates: start: 20030428
  9. SERTRALINE HYDROCHLORIDE. [Concomitant]
     Active Substance: SERTRALINE HYDROCHLORIDE
     Indication: PRODUCT USED FOR UNKNOWN INDICATION
     Dosage: 100 MG, DAILY
     Route: 065
     Dates: start: 201201
  10. PARACETAMOL [Concomitant]
     Active Substance: ACETAMINOPHEN
     Indication: PRODUCT USED FOR UNKNOWN INDICATION
     Dosage: UNK
     Route: 065
  11. TRAMADOL (UNKNOWN) [Suspect]
     Active Substance: TRAMADOL
     Indication: FRACTURE PAIN
     Dosage: 150 MG, BID; AT NIGHT
     Route: 065
     Dates: end: 200304

REACTIONS (2)
  - Renal failure [Not Recovered/Not Resolved]
  - Toxicity to various agents [Fatal]
